FAERS Safety Report 7743570-8 (Version None)
Quarter: 2011Q3

REPORT INFORMATION
  Report Type: 
  Country: None (occurrence: None)
  Receive Date: 20110912
  Receipt Date: 20110902
  Transmission Date: 20111222
  Serious: Yes (Hospitalization, Other)
  Sender: FDA-Public Use
  Company Number: US-ASTRAZENECA-2011SE32199

PATIENT
  Age: 64 Year
  Sex: Male

DRUGS (3)
  1. MOBIC [Concomitant]
  2. SYMBICORT [Suspect]
     Route: 055
  3. NEXIUM [Suspect]
     Route: 048

REACTIONS (4)
  - PNEUMONIA [None]
  - DYSPNOEA [None]
  - LOCALISED INFECTION [None]
  - LIVER DISORDER [None]
